FAERS Safety Report 10285204 (Version 5)
Quarter: 2020Q3

REPORT INFORMATION
  Report Type: Report from Study
  Country: US (occurrence: US)
  Receive Date: 20140708
  Receipt Date: 20200827
  Transmission Date: 20201102
  Serious: Yes (Hospitalization, Other)
  Sender: FDA-Public Use
  Company Number: US-SA-2014SA039870

PATIENT
  Age: 51 Year
  Sex: Female

DRUGS (1)
  1. TERIFLUNOMIDE. [Suspect]
     Active Substance: TERIFLUNOMIDE
     Indication: MULTIPLE SCLEROSIS
     Dosage: 14 MG,QD
     Route: 048
     Dates: start: 20140314, end: 202008

REACTIONS (12)
  - Toothache [Unknown]
  - Insomnia [Unknown]
  - Sinus disorder [Not Recovered/Not Resolved]
  - Alopecia [Unknown]
  - Throat clearing [Unknown]
  - Nasopharyngitis [Unknown]
  - Influenza [Unknown]
  - Impaired gastric emptying [Recovering/Resolving]
  - Multiple sclerosis relapse [Unknown]
  - Cough [Unknown]
  - Nasal congestion [Unknown]
  - Sneezing [Unknown]

NARRATIVE: CASE EVENT DATE: 201403
